FAERS Safety Report 19467431 (Version 1)
Quarter: 2021Q2

REPORT INFORMATION
  Report Type: Spontaneous
  Country: US (occurrence: US)
  Receive Date: 20210628
  Receipt Date: 20210628
  Transmission Date: 20210717
  Serious: Yes (Other)
  Sender: FDA-Public Use
  Company Number: US-B.I. PHARMACEUTICALS,INC./RIDGEFIELD-2021-BI-111042

PATIENT
  Age: 71 Year
  Sex: Female

DRUGS (1)
  1. ATROVENT [Suspect]
     Active Substance: IPRATROPIUM BROMIDE
     Indication: ASTHMA
     Dosage: INHALE 2 PUFFS TWICE PER DAY AND MORE IF NEEDED

REACTIONS (5)
  - Hip fracture [Recovered/Resolved]
  - Renal neoplasm [Recovered/Resolved]
  - Fall [Recovered/Resolved]
  - Intentional underdose [Unknown]
  - Asthma [Not Recovered/Not Resolved]

NARRATIVE: CASE EVENT DATE: 20200202
